FAERS Safety Report 14038666 (Version 1)
Quarter: 2017Q4

REPORT INFORMATION
  Report Type: Spontaneous
  Country: US (occurrence: US)
  Receive Date: 20171004
  Receipt Date: 20171004
  Transmission Date: 20180321
  Serious: Yes (Hospitalization)
  Sender: FDA-Public Use
  Company Number: US-VISTAPHARM, INC.-VER201709-000743

PATIENT
  Age: 13 Year
  Sex: Female

DRUGS (7)
  1. MAGNESIUM SULFATE 2G [Concomitant]
     Indication: STATUS ASTHMATICUS
     Route: 042
  2. SOLUMEDROL 60 MG [Concomitant]
     Indication: STATUS ASTHMATICUS
     Route: 042
  3. ALBUTEROL. [Suspect]
     Active Substance: ALBUTEROL
     Indication: ASTHMA
  4. ALBUTEROL. [Suspect]
     Active Substance: ALBUTEROL
     Indication: STATUS ASTHMATICUS
  5. ALBUTEROL. [Suspect]
     Active Substance: ALBUTEROL
  6. ALBUTEROL. [Suspect]
     Active Substance: ALBUTEROL
  7. DEXAMETHASONE. [Concomitant]
     Active Substance: DEXAMETHASONE
     Indication: ASTHMA
     Route: 042

REACTIONS (3)
  - Dizziness [Recovered/Resolved]
  - Diastolic hypotension [Unknown]
  - Lactic acidosis [Unknown]
